FAERS Safety Report 4476034-8 (Version None)
Quarter: 2004Q4

REPORT INFORMATION
  Report Type: 
  Country: None (occurrence: None)
  Receive Date: 20041012
  Receipt Date: 20040929
  Transmission Date: 20050328
  Serious: Yes (Death)
  Sender: FDA-Public Use
  Company Number: 2004071970

PATIENT
  Age: 39 Year
  Sex: Female

DRUGS (2)
  1. NEURONTIN [Suspect]
     Indication: DYSKINESIA
  2. NEURONTIN [Suspect]
     Indication: MIGRAINE

REACTIONS (6)
  - ANXIETY [None]
  - COMPLETED SUICIDE [None]
  - DRUG INEFFECTIVE [None]
  - PAIN [None]
  - POLYTRAUMATISM [None]
  - SUICIDAL IDEATION [None]
